FAERS Safety Report 23943499 (Version 2)
Quarter: 2025Q2

REPORT INFORMATION
  Report Type: Report from Study
  Country: US (occurrence: US)
  Receive Date: 20240605
  Receipt Date: 20250507
  Transmission Date: 20250716
  Serious: Yes (Hospitalization, Other)
  Sender: ABBVIE
  Company Number: US-ABBVIE-5706177

PATIENT
  Age: 57 Year
  Sex: Female
  Weight: 102 kg

DRUGS (8)
  1. HUMIRA [Suspect]
     Active Substance: ADALIMUMAB
     Indication: Rheumatoid arthritis
     Dosage: FORM STRENGTH UNITS:40 MILLIGRAM
     Route: 058
     Dates: start: 20220603
  2. HUMIRA [Suspect]
     Active Substance: ADALIMUMAB
     Route: 058
     Dates: start: 20240427, end: 2025
  3. HUMIRA [Suspect]
     Active Substance: ADALIMUMAB
     Route: 058
     Dates: start: 20200601
  4. TIZANIDINE [Concomitant]
     Active Substance: TIZANIDINE
     Indication: Muscle spasms
  5. CARVEDILOL [Concomitant]
     Active Substance: CARVEDILOL
     Indication: Hypertension
  6. LOXAPINE [Concomitant]
     Active Substance: LOXAPINE
     Indication: Muscle spasms
  7. EDARBYCLOR [Concomitant]
     Active Substance: AZILSARTAN KAMEDOXOMIL\CHLORTHALIDONE
     Indication: Hypertension
  8. ROSUVASTATIN [Concomitant]
     Active Substance: ROSUVASTATIN
     Indication: Blood cholesterol

REACTIONS (12)
  - Ligament rupture [Recovered/Resolved]
  - Fall [Recovered/Resolved]
  - Pain [Recovered/Resolved]
  - Arthritis [Unknown]
  - Polyp [Unknown]
  - Pneumonia [Unknown]
  - Meniere^s disease [Not Recovered/Not Resolved]
  - Fall [Recovered/Resolved]
  - Hand fracture [Unknown]
  - Vertigo [Not Recovered/Not Resolved]
  - Ligament rupture [Not Recovered/Not Resolved]
  - Rheumatoid factor increased [Not Recovered/Not Resolved]

NARRATIVE: CASE EVENT DATE: 20220101
